FAERS Safety Report 5213443-3 (Version None)
Quarter: 2007Q1

REPORT INFORMATION
  Report Type: 
  Country: None (occurrence: None)
  Receive Date: 20070119
  Receipt Date: 20070109
  Transmission Date: 20070707
  Serious: Yes (Hospitalization)
  Sender: FDA-Public Use
  Company Number: 2007SE00118

PATIENT
  Age: 78 Year
  Sex: Male

DRUGS (15)
  1. KENZEN 8 MG [Suspect]
     Indication: HYPERTENSION
     Route: 048
     Dates: start: 20061101, end: 20061108
  2. COUMADIN [Suspect]
     Indication: PROPHYLAXIS
     Route: 048
     Dates: start: 20061011, end: 20061101
  3. ALLOPURINOL TAB [Suspect]
     Indication: HYPERURICAEMIA
     Route: 048
     Dates: start: 20061001, end: 20061113
  4. PERINDOPRIL ERBUMINE [Suspect]
     Indication: LEFT VENTRICULAR FAILURE
     Route: 048
     Dates: start: 20061005, end: 20061101
  5. SIMVASTATIN [Suspect]
     Indication: PROPHYLAXIS
     Route: 048
     Dates: start: 20061014, end: 20061108
  6. CORDARONE [Suspect]
     Indication: LEFT VENTRICULAR FAILURE
     Route: 048
     Dates: start: 20061008
  7. CORTANCYL [Concomitant]
     Indication: DERMATOMYOSITIS
     Route: 048
     Dates: start: 19910101, end: 20061001
  8. LASIX [Concomitant]
     Indication: LEFT VENTRICULAR FAILURE
     Route: 048
  9. LASIX [Concomitant]
     Route: 048
     Dates: start: 20061116
  10. ATACAND [Concomitant]
     Indication: LEFT VENTRICULAR FAILURE
     Route: 048
     Dates: end: 20061001
  11. CARDENSIEL [Concomitant]
     Indication: LEFT VENTRICULAR FAILURE
     Route: 048
  12. PLAVIX [Concomitant]
     Indication: PROPHYLAXIS
     Route: 048
  13. ALPRAZOLAM [Concomitant]
     Indication: ANXIETY
     Route: 048
  14. CALCIPARINE [Concomitant]
     Indication: PROPHYLAXIS
     Route: 065
     Dates: start: 20061005, end: 20061101
  15. ASPIRIN [Concomitant]
     Indication: PROPHYLAXIS
     Route: 048

REACTIONS (11)
  - DEHYDRATION [None]
  - DERMATOMYOSITIS [None]
  - DIARRHOEA [None]
  - EOSINOPHILIA [None]
  - INTERNATIONAL NORMALISED RATIO ABNORMAL [None]
  - LEFT VENTRICULAR FAILURE [None]
  - LYMPHOPENIA [None]
  - PROTHROMBIN TIME ABNORMAL [None]
  - PROTHROMBIN TIME SHORTENED [None]
  - PRURITUS [None]
  - RENAL FAILURE ACUTE [None]
